FAERS Safety Report 6547948-X (Version None)
Quarter: 2010Q1

REPORT INFORMATION
  Report Type: 
  Country: None (occurrence: None)
  Receive Date: 20100124
  Receipt Date: 20091201
  Transmission Date: 20100710
  Serious: No
  Sender: FDA-Public Use
  Company Number: US-ALEXION-A200900611

PATIENT
  Sex: Male

DRUGS (7)
  1. SOLIRIS [Suspect]
     Indication: PAROXYSMAL NOCTURNAL HAEMOGLOBINURIA
     Dosage: 600 MG, QW X4
     Route: 042
     Dates: start: 20070503, end: 20070524
  2. SOLIRIS [Suspect]
     Dosage: 900 MG, Q2W
     Route: 042
     Dates: start: 20070531
  3. XANAX [Concomitant]
     Dosage: UNK
     Route: 048
  4. ZOLOFT [Concomitant]
     Dosage: UNK
     Route: 048
  5. PREDNISONE [Concomitant]
     Dosage: 20 MG, QD, PRN
     Route: 048
  6. MORPHINE [Concomitant]
     Dosage: UNK
     Route: 048
  7. FOLIC ACID [Concomitant]
     Dosage: UNK
     Route: 048

REACTIONS (1)
  - HAEMOLYSIS [None]
